FAERS Safety Report 25333340 (Version 4)
Quarter: 2025Q3

REPORT INFORMATION
  Report Type: Spontaneous
  Country: JP (occurrence: JP)
  Receive Date: 20250519
  Receipt Date: 20250707
  Transmission Date: 20251020
  Serious: Yes (Life-Threatening, Hospitalization, Other)
  Sender: SANOFI AVENTIS
  Company Number: JP-SAKK-2025SA140352AA

PATIENT
  Age: 29 Year
  Sex: Male

DRUGS (1)
  1. DUPIXENT [Suspect]
     Active Substance: DUPILUMAB
     Indication: Dermatitis atopic
     Dosage: 300 MG, QOW
     Route: 058
     Dates: start: 202411, end: 20250410

REACTIONS (10)
  - Hepatic echinococciasis [Recovered/Resolved]
  - Abdominal pain [Recovered/Resolved]
  - Hepatic cyst ruptured [Recovered/Resolved]
  - Abscess [Recovered/Resolved with Sequelae]
  - Subdiaphragmatic abscess [Unknown]
  - Abdominal pain upper [Unknown]
  - Infectious pleural effusion [Unknown]
  - Back pain [Unknown]
  - Liver abscess [Unknown]
  - Underdose [Unknown]

NARRATIVE: CASE EVENT DATE: 20241101
